FAERS Safety Report 9915280 (Version 2)
Quarter: 2014Q2

REPORT INFORMATION
  Report Type: Report from Study
  Country: GB (occurrence: GB)
  Receive Date: 20140221
  Receipt Date: 20140423
  Transmission Date: 20141212
  Serious: Yes (Hospitalization)
  Sender: FDA-Public Use
  Company Number: GB-ROCHE-1352528

PATIENT
  Age: 75 Year
  Sex: Female

DRUGS (8)
  1. RITUXIMAB [Suspect]
     Indication: B-CELL LYMPHOMA
     Route: 065
  2. FLUDARABINE [Suspect]
     Indication: B-CELL LYMPHOMA
     Route: 065
  3. CYCLOPHOSPHAMIDE [Suspect]
     Indication: B-CELL LYMPHOMA
     Route: 065
  4. METFORMIN [Concomitant]
     Route: 048
     Dates: start: 20110612
  5. SAXAGLIPTIN [Concomitant]
     Route: 048
     Dates: start: 20110612, end: 20120527
  6. ATORVASTATIN [Concomitant]
     Route: 048
     Dates: start: 20110612, end: 20120526
  7. ACICLOVIR [Concomitant]
     Route: 048
     Dates: start: 20110612, end: 20120526
  8. FOSTAIR [Concomitant]
     Dosage: 1 PUFF
     Route: 050

REACTIONS (1)
  - Transaminases increased [Recovered/Resolved]
